FAERS Safety Report 7946888-9 (Version None)
Quarter: 2011Q4

REPORT INFORMATION
  Report Type: 
  Country: None (occurrence: None)
  Receive Date: 20111129
  Receipt Date: 20111123
  Transmission Date: 20120403
  Serious: Yes (Hospitalization, Other)
  Sender: FDA-Public Use
  Company Number: PHEH2004US12293

PATIENT
  Sex: Female
  Weight: 56.689 kg

DRUGS (34)
  1. NEUPOGEN [Concomitant]
  2. ELAVIL [Concomitant]
  3. SOLU-MEDROL [Concomitant]
     Dosage: 60 MG, QD
     Route: 042
  4. ZOMETA [Suspect]
     Indication: MULTIPLE MYELOMA
     Dosage: 4 MG, Q 4 WEEKS
     Route: 042
     Dates: start: 20020411, end: 20040129
  5. PREMARIN [Concomitant]
  6. MELPHALAN HYDROCHLORIDE [Concomitant]
  7. SEPTRA [Concomitant]
  8. FOSAMAX [Concomitant]
  9. AMBIEN [Concomitant]
  10. DILTIAZEM HCL [Concomitant]
     Dosage: 30 MG, QD
  11. AREDIA [Suspect]
     Indication: MULTIPLE MYELOMA
     Dosage: 90 MG, Q 4 WEEKS
     Dates: start: 19980918, end: 20020314
  12. CLINDAMYCIN HCL [Concomitant]
     Indication: OSTEONECROSIS
     Dosage: 300 MG, TID
     Route: 065
     Dates: start: 20031113, end: 20040809
  13. HYDROXYZINE [Concomitant]
     Dosage: 50 MG, Q6H
  14. CIPROFLOXACIN [Concomitant]
     Dosage: 250 MG, QD
  15. LASIX [Concomitant]
     Dosage: 20 MG, QD
     Route: 042
  16. ATARAX [Concomitant]
     Dosage: 50 MG, Q6H
     Route: 048
  17. PERCOCET-5 [Concomitant]
  18. IMMUNE GLOBULIN NOS [Concomitant]
     Indication: IMMUNOSUPPRESSION
     Dates: start: 20041201
  19. PROVERA [Concomitant]
  20. GLUTAMINE [Concomitant]
     Dosage: 15 MG, TID
  21. THALIDOMIDE [Concomitant]
  22. PREDNISONE TAB [Concomitant]
     Dosage: 40 MG, QD
     Route: 048
  23. VITAMIN B NOS [Concomitant]
  24. PRILOSEC [Concomitant]
     Dosage: 20 MG
  25. DILTIAZEM HCL [Concomitant]
     Dosage: 240 MG DAILY
  26. PROCRIT                            /00909301/ [Concomitant]
  27. SENNA [Concomitant]
  28. RITUXAN [Concomitant]
  29. OXYCODONE HCL [Concomitant]
  30. ATIVAN [Concomitant]
  31. VALTREX [Concomitant]
  32. ZOVIRAX [Concomitant]
     Route: 061
  33. ZOFRAN [Concomitant]
     Dosage: 4 MG, PRN
     Route: 048
  34. LYRICA [Concomitant]

REACTIONS (73)
  - JAW DISORDER [None]
  - CORONARY ARTERY DISEASE [None]
  - ATELECTASIS [None]
  - BLOOD IMMUNOGLOBULIN G DECREASED [None]
  - WEIGHT DECREASED [None]
  - HERPES ZOSTER [None]
  - OSTEOARTHRITIS [None]
  - DYSPNOEA [None]
  - HYPOXIA [None]
  - FEBRILE NEUTROPENIA [None]
  - AORTIC VALVE INCOMPETENCE [None]
  - GAIT DISTURBANCE [None]
  - DIVERTICULITIS [None]
  - MASS [None]
  - DERMATITIS EXFOLIATIVE [None]
  - BLOOD IMMUNOGLOBULIN A DECREASED [None]
  - SERUM SICKNESS [None]
  - PRURITUS [None]
  - RASH [None]
  - HAEMATURIA [None]
  - SKIN LESION [None]
  - CONFUSIONAL STATE [None]
  - EMPYEMA [None]
  - CELLULITIS [None]
  - THYROID CYST [None]
  - BREAST HYPERPLASIA [None]
  - DIABETIC NEUROPATHY [None]
  - OSTEONECROSIS OF JAW [None]
  - GINGIVAL RECESSION [None]
  - DENTAL ALVEOLAR ANOMALY [None]
  - BREAST CANCER IN SITU [None]
  - BETA 2 MICROGLOBULIN INCREASED [None]
  - BLOOD IMMUNOGLOBULIN M INCREASED [None]
  - PYREXIA [None]
  - BLOOD URINE [None]
  - ASTHENIA [None]
  - NEOPLASM MALIGNANT [None]
  - SEPSIS [None]
  - BONE SWELLING [None]
  - PANCYTOPENIA [None]
  - TYPE 2 DIABETES MELLITUS [None]
  - PLEURAL EFFUSION [None]
  - ANAEMIA [None]
  - ABSCESS INTESTINAL [None]
  - CONJUNCTIVITIS [None]
  - FAILURE TO THRIVE [None]
  - OEDEMA PERIPHERAL [None]
  - HYPERTENSION [None]
  - OSTEITIS [None]
  - B-CELL LYMPHOMA [None]
  - CHOLELITHIASIS [None]
  - NORMOCHROMIC NORMOCYTIC ANAEMIA [None]
  - EPIDERMAL NECROSIS [None]
  - SKIN FRAGILITY [None]
  - PARANOIA [None]
  - DYSPHAGIA [None]
  - FOOT FRACTURE [None]
  - TRICUSPID VALVE INCOMPETENCE [None]
  - LICHENOID KERATOSIS [None]
  - DECUBITUS ULCER [None]
  - PAIN [None]
  - LETHARGY [None]
  - DELIRIUM [None]
  - BONE NEOPLASM MALIGNANT [None]
  - PERONEAL NERVE PALSY [None]
  - ONYCHOMYCOSIS [None]
  - BONE DISORDER [None]
  - FIBROCYSTIC BREAST DISEASE [None]
  - POST HERPETIC NEURALGIA [None]
  - VAGINAL HAEMORRHAGE [None]
  - MITRAL VALVE INCOMPETENCE [None]
  - CACHEXIA [None]
  - DEPRESSION [None]
